FAERS Safety Report 18222518 (Version 1)
Quarter: 2020Q3

REPORT INFORMATION
  Report Type: Report from Study
  Country: US (occurrence: US)
  Receive Date: 20200902
  Receipt Date: 20200902
  Transmission Date: 20201103
  Serious: Yes (Other)
  Sender: FDA-Public Use
  Company Number: US-JNJFOC-20200838487

PATIENT
  Age: 54 Year
  Sex: Female

DRUGS (13)
  1. SIMPONI [Suspect]
     Active Substance: GOLIMUMAB
     Indication: PSORIATIC ARTHROPATHY
     Route: 058
     Dates: start: 20200626
  2. PREGABALIN. [Concomitant]
     Active Substance: PREGABALIN
  3. TRAMADOL. [Concomitant]
     Active Substance: TRAMADOL
  4. SIMPONI [Suspect]
     Active Substance: GOLIMUMAB
  5. CYANOCABALAM [Concomitant]
  6. CYCLOBENZAPR [Concomitant]
     Active Substance: CYCLOBENZAPRINE
  7. FOLIC ACID. [Concomitant]
     Active Substance: FOLIC ACID
  8. MORPHINE [Concomitant]
     Active Substance: MORPHINE
  9. SERTRALINE [Concomitant]
     Active Substance: SERTRALINE HYDROCHLORIDE
  10. METHOTREXATE. [Concomitant]
     Active Substance: METHOTREXATE
  11. NAPROXEN. [Concomitant]
     Active Substance: NAPROXEN
  12. CLONAZEPAM. [Concomitant]
     Active Substance: CLONAZEPAM
  13. LAMOTRIGINE. [Concomitant]
     Active Substance: LAMOTRIGINE

REACTIONS (9)
  - Diarrhoea [Not Recovered/Not Resolved]
  - Abdominal pain upper [Not Recovered/Not Resolved]
  - Weight decreased [Not Recovered/Not Resolved]
  - Dizziness [Not Recovered/Not Resolved]
  - Psoriasis [Not Recovered/Not Resolved]
  - Psoriatic arthropathy [Not Recovered/Not Resolved]
  - Fatigue [Not Recovered/Not Resolved]
  - Infection [Not Recovered/Not Resolved]
  - Pollakiuria [Not Recovered/Not Resolved]

NARRATIVE: CASE EVENT DATE: 2020
